FAERS Safety Report 8591229-X (Version None)
Quarter: 2012Q3

REPORT INFORMATION
  Report Type: 
  Country: None (occurrence: None)
  Receive Date: 20120813
  Receipt Date: 20120802
  Transmission Date: 20120928
  Serious: Yes (Hospitalization, Other)
  Sender: FDA-Public Use
  Company Number: US-AMGEN-USACT2012045965

PATIENT
  Age: 55 Year
  Sex: Female
  Weight: 61.82 kg

DRUGS (10)
  1. PEPCID [Concomitant]
     Dosage: 40 MG, UNK
     Route: 048
     Dates: start: 20110314
  2. EFFEXOR [Concomitant]
     Dosage: 37.5 MG, UNK
     Route: 048
     Dates: start: 20030115
  3. CALCIUM CARBONATE [Concomitant]
     Dosage: 600 MG, UNK
     Route: 048
     Dates: start: 20110328
  4. VITAMIN D [Concomitant]
     Dosage: 400 UNK, UNK
     Route: 048
     Dates: start: 20110328
  5. ASPIRIN [Concomitant]
     Dosage: 81 MG, UNK
     Route: 048
     Dates: start: 20101215
  6. DENOSUMAB [Suspect]
     Indication: BREAST CANCER
     Dosage: 1.7 ML, UNK
     Route: 058
     Dates: start: 20110405
  7. VITAMIN B COMPLEX CAP [Concomitant]
     Dosage: 750 MG, UNK
     Route: 048
     Dates: start: 20110115
  8. CLARITIN [Concomitant]
     Dosage: 10 MG, UNK
     Route: 048
     Dates: start: 20110410
  9. GLUCOSAMINE [Concomitant]
     Dosage: 1500 MG, UNK
     Route: 048
     Dates: start: 20101215
  10. CHONDROITIN [Concomitant]
     Dosage: 800 MG, UNK
     Route: 048
     Dates: start: 20101215

REACTIONS (1)
  - METASTASES TO CENTRAL NERVOUS SYSTEM [None]
